FAERS Safety Report 14674454 (Version 2)
Quarter: 2018Q2

REPORT INFORMATION
  Report Type: Spontaneous
  Country: BR (occurrence: BR)
  Receive Date: 20180323
  Receipt Date: 20180410
  Transmission Date: 20180711
  Serious: Yes (Hospitalization, Other)
  Sender: FDA-Public Use
  Company Number: BR-SA-2018SA026468

PATIENT
  Sex: Female
  Weight: 88 kg

DRUGS (33)
  1. LEVOTHYROXINE SODIUM. [Suspect]
     Active Substance: LEVOTHYROXINE SODIUM
     Route: 065
     Dates: start: 20130801, end: 20160406
  2. LEVOTHYROXINE SODIUM. [Suspect]
     Active Substance: LEVOTHYROXINE SODIUM
     Route: 065
     Dates: start: 20160623
  3. LEVOTHYROXINE SODIUM. [Suspect]
     Active Substance: LEVOTHYROXINE SODIUM
     Dosage: 06:00AM ON FASTING
     Route: 065
     Dates: start: 20170415
  4. ORLISTAT. [Concomitant]
     Active Substance: ORLISTAT
     Route: 065
     Dates: start: 20160620
  5. SIMVASTATIN. [Concomitant]
     Active Substance: SIMVASTATIN
     Route: 065
     Dates: start: 20160808, end: 20171225
  6. BONECAL D [Concomitant]
     Dosage: 2 TABLETS (MORNING/NIGHT)
     Route: 065
     Dates: start: 20170914
  7. SERTRALINE [Concomitant]
     Active Substance: SERTRALINE HYDROCHLORIDE
     Route: 065
     Dates: start: 20180301
  8. TACITA [Concomitant]
     Route: 065
     Dates: start: 20161025, end: 20161225
  9. PURAN [Concomitant]
     Active Substance: LEVOTHYROXINE SODIUM
     Route: 065
     Dates: start: 20180107
  10. THYROGEN [Suspect]
     Active Substance: THYROTROPIN ALFA
     Indication: THYROIDECTOMY
     Route: 030
     Dates: start: 20161219, end: 20161220
  11. LEVOTHYROXINE SODIUM. [Suspect]
     Active Substance: LEVOTHYROXINE SODIUM
     Dosage: 06:00AM ON FASTING
     Route: 065
     Dates: start: 20160616, end: 20160622
  12. CARBAMAZEPINE. [Concomitant]
     Active Substance: CARBAMAZEPINE
     Dosage: 5 TABLETS PER DAY (2 IN THE MORNING IN THE BREAKFAST, 1 IN THE AFTERNOON AT 14-15PM AND 2 AT NIGHT
     Route: 065
  13. BONECAL D [Concomitant]
     Dosage: 1 IN THE EARLY AND 1 AT NIGHT
     Route: 065
     Dates: start: 20161018
  14. OSSONE [Concomitant]
     Dosage: IN THE BREAKFAST
     Route: 065
     Dates: start: 20180226
  15. ESOMEPRAZOL [Concomitant]
     Active Substance: ESOMEPRAZOLE
     Route: 065
     Dates: start: 20150821, end: 20160903
  16. CLOBAZAM [Concomitant]
     Active Substance: CLOBAZAM
     Route: 065
  17. BONECAL D [Concomitant]
     Dosage: 3 TABLETS (MORNING/AFTERNOON/NIGHT)
     Route: 065
     Dates: start: 20170914
  18. FLUOXETINE [Concomitant]
     Active Substance: FLUOXETINE HYDROCHLORIDE
     Route: 065
     Dates: start: 20170723
  19. LEVOTHYROXINE SODIUM. [Suspect]
     Active Substance: LEVOTHYROXINE SODIUM
     Dosage: A TABLET OF 100MCG+ 3 TABLETS OF 25MCG
     Route: 065
     Dates: start: 20160909
  20. SIGMATRIOL [Concomitant]
     Active Substance: CALCITRIOL
     Route: 065
  21. BONECAL D [Concomitant]
     Route: 065
     Dates: start: 20160823
  22. PANTOPRAZOL [Concomitant]
     Active Substance: PANTOPRAZOLE SODIUM
     Route: 065
     Dates: start: 20160804, end: 20161021
  23. PANTOPRAZOL [Concomitant]
     Active Substance: PANTOPRAZOLE SODIUM
     Dosage: 1 TABLET OF 40MG AT 7AM ON FASTING OR 2 TABLETS OF 20MG
     Route: 065
     Dates: start: 20161021, end: 20161221
  24. FLUOXETINE [Concomitant]
     Active Substance: FLUOXETINE HYDROCHLORIDE
     Route: 065
     Dates: start: 20160903
  25. CLOBAZAM [Concomitant]
     Active Substance: CLOBAZAM
     Dosage: HALF TABLET
     Route: 065
     Dates: start: 20160728, end: 20160816
  26. SERTRALINE [Concomitant]
     Active Substance: SERTRALINE HYDROCHLORIDE
     Dosage: IN THE BREAKFAST AND 14-15 P.M.
     Route: 065
     Dates: start: 20180209, end: 20180228
  27. ORLISTAT. [Concomitant]
     Active Substance: ORLISTAT
     Dosage: 7AM NAD IN THE AFTERNOON AT 14-15PM
     Route: 065
     Dates: start: 20121126, end: 20160506
  28. SIMVASTATIN. [Concomitant]
     Active Substance: SIMVASTATIN
     Route: 065
     Dates: end: 20160522
  29. CALCIUM [Concomitant]
     Active Substance: CALCIUM
     Dosage: 2 TABLETS PER DAY
     Route: 065
     Dates: start: 20160407, end: 20160417
  30. CLOBAZAM [Concomitant]
     Active Substance: CLOBAZAM
     Route: 065
     Dates: end: 20160805
  31. THYROGEN [Suspect]
     Active Substance: THYROTROPIN ALFA
     Indication: RADIOACTIVE IODINE THERAPY
     Route: 030
     Dates: start: 20161219, end: 20161220
  32. LEVOTHYROXINE SODIUM. [Suspect]
     Active Substance: LEVOTHYROXINE SODIUM
     Route: 065
     Dates: start: 20160407, end: 20160506
  33. LEVOTHYROXINE SODIUM. [Suspect]
     Active Substance: LEVOTHYROXINE SODIUM
     Dosage: A TABLET OF 100MCG+ 1 TABLET OF 25MCG
     Route: 065
     Dates: start: 20160828

REACTIONS (13)
  - Erythema [Not Recovered/Not Resolved]
  - Mastication disorder [Not Recovered/Not Resolved]
  - Angioedema [Not Recovered/Not Resolved]
  - Hormone level abnormal [Unknown]
  - Influenza [Not Recovered/Not Resolved]
  - Diarrhoea [Not Recovered/Not Resolved]
  - Skin texture abnormal [Not Recovered/Not Resolved]
  - Urticaria [Not Recovered/Not Resolved]
  - Weight increased [Unknown]
  - Blood test abnormal [Unknown]
  - Asthenia [Not Recovered/Not Resolved]
  - Movement disorder [Not Recovered/Not Resolved]
  - Vomiting [Not Recovered/Not Resolved]

NARRATIVE: CASE EVENT DATE: 2016
